FAERS Safety Report 22031179 (Version 28)
Quarter: 2024Q2

REPORT INFORMATION
  Report Type: Spontaneous
  Country: CA (occurrence: CA)
  Receive Date: 20230223
  Receipt Date: 20240401
  Transmission Date: 20240716
  Serious: Yes (Hospitalization, Other)
  Sender: FDA-Public Use
  Company Number: CA-CELLTRION INC.-2022CA020633

PATIENT

DRUGS (17)
  1. INFLECTRA [Suspect]
     Active Substance: INFLIXIMAB-DYYB
     Indication: Crohn^s disease
     Dosage: 5 MG/KG, INDUCTION W 0,2,6 THEN EVERY 4 WEEKS
     Route: 042
     Dates: start: 20221207
  2. INFLECTRA [Suspect]
     Active Substance: INFLIXIMAB-DYYB
     Dosage: 5 MG/KG, INDUCTION W0,2,6 ]THEN EVERY 4 WEEKS
     Route: 042
     Dates: start: 20221221
  3. INFLECTRA [Suspect]
     Active Substance: INFLIXIMAB-DYYB
     Dosage: 5 MG/KG, INDUCTION W0,2,6 THEN EVERY 4 WEEKS
     Route: 042
     Dates: start: 20230118
  4. INFLECTRA [Suspect]
     Active Substance: INFLIXIMAB-DYYB
     Dosage: 5 MG/KG (300 MG), EVERY 4 WEEK
     Route: 042
     Dates: start: 20230214
  5. INFLECTRA [Suspect]
     Active Substance: INFLIXIMAB-DYYB
     Dosage: 5 MG/KG, EVERY 4 WEEKS
     Route: 042
     Dates: start: 20230315
  6. INFLECTRA [Suspect]
     Active Substance: INFLIXIMAB-DYYB
     Dosage: 5 MG/KG (280 MG), EVERY 4 WEEKS
     Route: 042
     Dates: start: 20230504
  7. INFLECTRA [Suspect]
     Active Substance: INFLIXIMAB-DYYB
     Dosage: 300 MG, EVERY 4 WEEKS
     Route: 042
     Dates: start: 20230629
  8. INFLECTRA [Suspect]
     Active Substance: INFLIXIMAB-DYYB
     Dosage: 255 MG, AFTER 4 WEEKS 6 DAYS (PRESCRIBE EVERY 4 WEEKS)
     Route: 042
     Dates: start: 20230802, end: 20230802
  9. INFLECTRA [Suspect]
     Active Substance: INFLIXIMAB-DYYB
     Dosage: 250 MG, AFTER 4 WEEKS (PRESCRIBED 5 MG/KG, INDUCTION W 0,2,6 THEN EVERY 4 WEEKS)
     Route: 042
     Dates: start: 20230831
  10. INFLECTRA [Suspect]
     Active Substance: INFLIXIMAB-DYYB
     Dosage: 245 MG, AFTER 4 WEEKS
     Route: 042
     Dates: start: 20230928
  11. INFLECTRA [Suspect]
     Active Substance: INFLIXIMAB-DYYB
     Dosage: 250 MG AFTER 4 WEEKS AND 5 DAYS
     Route: 042
     Dates: start: 20231031
  12. INFLECTRA [Suspect]
     Active Substance: INFLIXIMAB-DYYB
     Dosage: 5 MG/KG, INDUCTION W 0,2,6 THEN EVERY 4 WEEKS (DOSE ADMINISTERED:  260MG, 4 WEEKS)
     Route: 042
     Dates: start: 20231128
  13. INFLECTRA [Suspect]
     Active Substance: INFLIXIMAB-DYYB
     Dosage: 5 MG/KG, INDUCTION W0,2,6 THEN EVERY 4 WEEKS (570MG EVERY 4 WEEKS)
     Route: 042
     Dates: start: 20231228
  14. INFLECTRA [Suspect]
     Active Substance: INFLIXIMAB-DYYB
     Dosage: 590 MG, INDUCTION W0,2,6 THEN EVERY 4 WEEKS (AFTER 2 WEEKS 4 DAYS)
     Route: 042
     Dates: start: 20240115
  15. INFLECTRA [Suspect]
     Active Substance: INFLIXIMAB-DYYB
     Dosage: 5 MG/KG, REINDUCTION WEEKS 0, 2, 6 MAINTENANCE EVERY 4 WEEKS(600 MG, 4 WEEKS)
     Route: 042
     Dates: start: 20240213
  16. INFLECTRA [Suspect]
     Active Substance: INFLIXIMAB-DYYB
     Dosage: 10 MG/KG, REINDUCTION WEEKS 0, 2, 6 MAINTENANCE EVERY 4 WEEKS (AFTER 5 WEEKS 2 DAYS)
     Route: 042
     Dates: start: 20240321
  17. PENTASA [Concomitant]
     Active Substance: MESALAMINE
     Dosage: 1 DF

REACTIONS (26)
  - Sepsis [Not Recovered/Not Resolved]
  - Infected fistula [Recovering/Resolving]
  - Infection [Not Recovered/Not Resolved]
  - Abscess limb [Not Recovered/Not Resolved]
  - Haemorrhage [Not Recovered/Not Resolved]
  - Fistula [Recovered/Resolved]
  - Bladder disorder [Recovering/Resolving]
  - Blood urine present [Recovering/Resolving]
  - Rectal abscess [Unknown]
  - Abscess [Recovered/Resolved]
  - Condition aggravated [Recovered/Resolved]
  - Drainage [Unknown]
  - Drug level decreased [Unknown]
  - Aphthous ulcer [Recovered/Resolved]
  - Swelling [Not Recovered/Not Resolved]
  - Movement disorder [Not Recovered/Not Resolved]
  - Anal fistula [Recovered/Resolved]
  - Weight decreased [Not Recovered/Not Resolved]
  - Arthralgia [Recovered/Resolved]
  - Anal fissure [Recovered/Resolved]
  - Abdominal discomfort [Unknown]
  - Vomiting [Unknown]
  - Off label use [Unknown]
  - Off label use [Unknown]
  - Intentional product use issue [Unknown]
  - Inappropriate schedule of product administration [Unknown]

NARRATIVE: CASE EVENT DATE: 20220101
